FAERS Safety Report 22889926 (Version 4)
Quarter: 2023Q4

REPORT INFORMATION
  Report Type: Spontaneous
  Country: US (occurrence: US)
  Receive Date: 20230831
  Receipt Date: 20231130
  Transmission Date: 20240110
  Serious: Yes (Death, Life-Threatening, Hospitalization, Other)
  Sender: FDA-Public Use
  Company Number: US-GILEAD-2023-0641864

PATIENT
  Age: 73 Year
  Sex: Male

DRUGS (12)
  1. YESCARTA [Suspect]
     Active Substance: AXICABTAGENE CILOLEUCEL
     Indication: Diffuse large B-cell lymphoma
     Dosage: 2X10^8 IN 68 ML
     Route: 065
     Dates: start: 20230815, end: 20230815
  2. REMDESIVIR [Concomitant]
     Active Substance: REMDESIVIR
     Indication: COVID-19
     Dosage: COMPLETED X 5 DAYS
  3. KEPPRA [Concomitant]
     Active Substance: LEVETIRACETAM
     Dosage: 500 MG, BID PO/IV
     Dates: start: 20230814, end: 20230913
  4. ACYCLOVIR [Concomitant]
     Active Substance: ACYCLOVIR
  5. OMEPRAZOLE [Concomitant]
     Active Substance: OMEPRAZOLE
  6. ATIVAN [Concomitant]
     Active Substance: LORAZEPAM
  7. AMITRIPTYLINE [Concomitant]
     Active Substance: AMITRIPTYLINE
  8. ATOVAQUONE [Concomitant]
     Active Substance: ATOVAQUONE
  9. FAMOTIDINE [Concomitant]
     Active Substance: FAMOTIDINE
  10. PEPPERMINT OIL [Concomitant]
     Active Substance: PEPPERMINT OIL
  11. POTASSIUM PHOSPHATE, MONOBASIC [Concomitant]
     Active Substance: POTASSIUM PHOSPHATE, MONOBASIC
  12. PROCHLORPERAZINE [Concomitant]
     Active Substance: PROCHLORPERAZINE

REACTIONS (11)
  - Cerebral disorder [Unknown]
  - Bacterial test positive [Unknown]
  - Hepatic steatosis [Unknown]
  - Gallbladder disorder [Unknown]
  - Hyperbilirubinaemia [Unknown]
  - Hypertransaminasaemia [Unknown]
  - COVID-19 [Unknown]
  - Encephalopathy [Unknown]
  - Immune effector cell-associated neurotoxicity syndrome [Unknown]
  - Cytokine release syndrome [Recovered/Resolved]
  - Cardio-respiratory arrest [Fatal]

NARRATIVE: CASE EVENT DATE: 20230817
